FAERS Safety Report 21906933 (Version 1)
Quarter: 2023Q1

REPORT INFORMATION
  Report Type: Report from Study
  Country: DE (occurrence: DE)
  Receive Date: 20230125
  Receipt Date: 20230125
  Transmission Date: 20230418
  Serious: Yes (Death, Hospitalization)
  Sender: FDA-Public Use
  Company Number: DE-BAYER-2022A068903

PATIENT
  Age: 58 Year
  Sex: Female

DRUGS (1)
  1. VENTAVIS [Suspect]
     Active Substance: ILOPROST
     Indication: Pulmonary arterial hypertension
     Dosage: 6ID
     Route: 055
     Dates: start: 20190510

REACTIONS (3)
  - Oedema peripheral [Fatal]
  - Dyspnoea [Fatal]
  - Oedema peripheral [Unknown]

NARRATIVE: CASE EVENT DATE: 20220512
